FAERS Safety Report 9110519 (Version 1)
Quarter: 2013Q1

REPORT INFORMATION
  Report Type: Spontaneous
  Country: US (occurrence: US)
  Receive Date: 20130221
  Receipt Date: 20130221
  Transmission Date: 20140127
  Serious: No
  Sender: FDA-Public Use
  Company Number: US-BRACCO-008722

PATIENT
  Sex: 0

DRUGS (2)
  1. CHOLETEC [Suspect]
     Indication: DIAGNOSTIC PROCEDURE
     Dates: start: 2012, end: 2012
  2. CHOLETEC [Suspect]
     Indication: PRODUCT USED FOR UNKNOWN INDICATION
     Dates: start: 2012, end: 2012

REACTIONS (1)
  - Poor quality drug administered [Unknown]
